FAERS Safety Report 15506387 (Version 2)
Quarter: 2019Q2

REPORT INFORMATION
  Report Type: Other
  Country: None (occurrence: CA)
  Receive Date: 20181016
  Receipt Date: 20190507
  Transmission Date: 20190711
  Serious: Yes (Other)
  Sender: FDA-Public Use
  Company Number: CA-DUCHESNAY INC.-2056081

PATIENT

DRUGS (12)
  1. ACETYLSALICYLIC ACID [Suspect]
     Active Substance: ASPIRIN
  2. DEXPANTHENOL/ERGOCALCIFEROL/FOLIC ACID/NICOTINAMIDE/RIBOFLAVIN/THIAMIN [Suspect]
     Active Substance: VITAMINS
  3. NIFEDIPINE. [Suspect]
     Active Substance: NIFEDIPINE
  4. INSULIN [Suspect]
     Active Substance: INSULIN NOS
  5. NIFEDIPINE. [Suspect]
     Active Substance: NIFEDIPINE
  6. NIFEDIPINE. [Suspect]
     Active Substance: NIFEDIPINE
  7. SILDENAFIL. [Suspect]
     Active Substance: SILDENAFIL
  8. DICLEGIS [Suspect]
     Active Substance: DOXYLAMINE SUCCINATE\PYRIDOXINE HYDROCHLORIDE
     Indication: FOETAL EXPOSURE DURING PREGNANCY
     Route: 064
  9. CHLORHEXIDINE [Suspect]
     Active Substance: CHLORHEXIDINE
  10. METFORMIN [Suspect]
     Active Substance: METFORMIN HYDROCHLORIDE
  11. METHYLDOPA. [Suspect]
     Active Substance: METHYLDOPA
  12. SILDENAFIL. [Suspect]
     Active Substance: SILDENAFIL

REACTIONS (2)
  - Premature baby [Unknown]
  - Foetal exposure during pregnancy [Unknown]
